FAERS Safety Report 25341966 (Version 2)
Quarter: 2025Q3

REPORT INFORMATION
  Report Type: Spontaneous
  Country: EU (occurrence: EU)
  Receive Date: 20250521
  Receipt Date: 20250814
  Transmission Date: 20251020
  Serious: Yes (Other)
  Sender: NOVARTIS
  Company Number: EU-RECORDATI-2025003199

PATIENT
  Age: 43 Year
  Sex: Female
  Weight: 167 kg

DRUGS (6)
  1. TEGRETOL [Interacting]
     Active Substance: CARBAMAZEPINE
     Indication: Bipolar disorder
     Route: 065
     Dates: start: 2024
  2. METHADONE [Interacting]
     Active Substance: METHADONE HYDROCHLORIDE
     Indication: Drug withdrawal maintenance therapy
     Dosage: 200 MILLIGRAM, QD
     Route: 065
     Dates: start: 2006
  3. METHADONE [Interacting]
     Active Substance: METHADONE HYDROCHLORIDE
     Route: 065
     Dates: start: 20250716
  4. CARBAMAZEPINE [Concomitant]
     Active Substance: CARBAMAZEPINE
     Indication: Bipolar disorder
     Dosage: 800 MILLIGRAM, QD
     Route: 048
     Dates: start: 20231226
  5. METHYLPHENIDATE HYDROCHLORIDE [Concomitant]
     Active Substance: METHYLPHENIDATE HYDROCHLORIDE
     Indication: Attention deficit hyperactivity disorder
     Dosage: 50 MILLIGRAM, QD
     Route: 048
  6. ALPRAZOLAM [Concomitant]
     Active Substance: ALPRAZOLAM
     Indication: Product used for unknown indication
     Route: 048

REACTIONS (3)
  - Drug interaction [Recovered/Resolved]
  - Drug level decreased [Unknown]
  - Withdrawal syndrome [Not Recovered/Not Resolved]
